FAERS Safety Report 13876734 (Version 2)
Quarter: 2017Q3

REPORT INFORMATION
  Report Type: Spontaneous
  Country: US (occurrence: US)
  Receive Date: 20170817
  Receipt Date: 20170920
  Transmission Date: 20171127
  Serious: Yes (Hospitalization, Other)
  Sender: FDA-Public Use
  Company Number: US-NAPPMUNDI-USA-2017-0140306

PATIENT
  Age: 13 Year
  Sex: Male

DRUGS (6)
  1. APTENSIO XR [Suspect]
     Active Substance: METHYLPHENIDATE HYDROCHLORIDE
     Indication: ATTENTION DEFICIT/HYPERACTIVITY DISORDER
     Dosage: 40 MG, UNK
     Route: 048
     Dates: start: 20170417, end: 20170517
  2. APTENSIO XR [Suspect]
     Active Substance: METHYLPHENIDATE HYDROCHLORIDE
     Dosage: 50 MG, UNK
     Route: 048
     Dates: start: 20170412, end: 20170417
  3. APTENSIO XR [Suspect]
     Active Substance: METHYLPHENIDATE HYDROCHLORIDE
     Dosage: 30 MG, UNK
     Route: 048
     Dates: start: 20161005
  4. APTENSIO XR [Suspect]
     Active Substance: METHYLPHENIDATE HYDROCHLORIDE
     Dosage: 40 MG, UNK
     Route: 048
     Dates: start: 20161107
  5. ZYRTEC [Concomitant]
     Active Substance: CETIRIZINE HYDROCHLORIDE
     Indication: HYPERSENSITIVITY
     Dosage: 10 MG, UNK
     Route: 065
  6. INTUNIV [Concomitant]
     Active Substance: GUANFACINE HYDROCHLORIDE
     Indication: ATTENTION DEFICIT/HYPERACTIVITY DISORDER
     Dosage: 3 MG, UNK
     Route: 065
     Dates: start: 20151202, end: 20170802

REACTIONS (4)
  - Hepatic failure [Recovered/Resolved]
  - Hepatic enzyme increased [Recovering/Resolving]
  - Drug ineffective [Unknown]
  - Seizure [Recovered/Resolved]

NARRATIVE: CASE EVENT DATE: 20170417
